FAERS Safety Report 24998040 (Version 1)
Quarter: 2025Q1

REPORT INFORMATION
  Report Type: Spontaneous
  Country: US (occurrence: US)
  Receive Date: 20250222
  Receipt Date: 20250222
  Transmission Date: 20250409
  Serious: No
  Sender: SANOFI AVENTIS
  Company Number: US-SA-2025SA041874

PATIENT
  Sex: Female

DRUGS (7)
  1. DUPIXENT [Suspect]
     Active Substance: DUPILUMAB
     Indication: Dermatitis atopic
     Dosage: 300 MG, QOW
     Route: 058
  2. DIGOXIN [Concomitant]
     Active Substance: DIGOXIN
  3. HYDROXYCHLOROQUINE [Concomitant]
     Active Substance: HYDROXYCHLOROQUINE
  4. SIMVASTATIN [Concomitant]
     Active Substance: SIMVASTATIN
  5. SPIRONOLACTONE [Concomitant]
     Active Substance: SPIRONOLACTONE
  6. TRAMADOL HCL [Concomitant]
     Active Substance: TRAMADOL HYDROCHLORIDE
  7. XARELTO [Concomitant]
     Active Substance: RIVAROXABAN

REACTIONS (5)
  - Scratch [Unknown]
  - Dry skin [Unknown]
  - Skin haemorrhage [Unknown]
  - Dermatitis atopic [Unknown]
  - Drug ineffective [Unknown]
